FAERS Safety Report 9344377 (Version 1)
Quarter: 2013Q2

REPORT INFORMATION
  Report Type: Spontaneous
  Country: US (occurrence: None)
  Receive Date: 20130611
  Receipt Date: 20130611
  Transmission Date: 20140414
  Serious: Yes (Other)
  Sender: FDA-Public Use
  Company Number: None

PATIENT
  Age: 60 Year
  Sex: Female
  Weight: 49.9 kg

DRUGS (1)
  1. FLUOXETINE [Suspect]
     Indication: DYSTHYMIC DISORDER
     Route: 048

REACTIONS (1)
  - Supraventricular tachycardia [None]
